FAERS Safety Report 16986636 (Version 1)
Quarter: 2019Q4

REPORT INFORMATION
  Report Type: Spontaneous
  Country: US (occurrence: US)
  Receive Date: 20191101
  Receipt Date: 20191101
  Transmission Date: 20200122
  Serious: No
  Sender: FDA-Public Use
  Company Number: US-JAZZ-2019-US-012901

PATIENT
  Age: 29 Year
  Sex: Female

DRUGS (6)
  1. VIIBRYD [Concomitant]
     Active Substance: VILAZODONE HYDROCHLORIDE
     Indication: DEPRESSION
  2. MODAFINIL. [Concomitant]
     Active Substance: MODAFINIL
     Indication: SOMNOLENCE
     Dosage: UNK
     Dates: end: 2019
  3. SUNOSI [Suspect]
     Active Substance: SOLRIAMFETOL
     Indication: SOMNOLENCE
     Dosage: 150 UNK, UNK
     Dates: start: 2019, end: 2019
  4. SUNOSI [Suspect]
     Active Substance: SOLRIAMFETOL
     Dosage: 75 MG, QD
     Dates: start: 2019
  5. HYDROXYZINE [Concomitant]
     Active Substance: HYDROXYZINE HYDROCHLORIDE
     Indication: INSOMNIA
     Dosage: UNK
     Dates: end: 2019
  6. SUNOSI [Suspect]
     Active Substance: SOLRIAMFETOL
     Dosage: 75 MG, QD FOR THE FIRST TWO WEEKS
     Dates: start: 2019, end: 2019

REACTIONS (1)
  - Therapeutic response decreased [Recovering/Resolving]
